FAERS Safety Report 14547692 (Version 3)
Quarter: 2018Q2

REPORT INFORMATION
  Report Type: Spontaneous
  Country: PL (occurrence: PL)
  Receive Date: 20180219
  Receipt Date: 20180508
  Transmission Date: 20180711
  Serious: Yes (Other)
  Sender: FDA-Public Use
  Company Number: PL-ABBVIE-18P-129-2262086-00

PATIENT
  Age: 19 Year
  Sex: Male

DRUGS (3)
  1. TIAPRIDAL [Suspect]
     Active Substance: TIAPRIDE HYDROCHLORIDE
     Indication: PARTIAL SEIZURES
     Route: 065
     Dates: start: 20160101
  2. VALPROATE SODIUM. [Suspect]
     Active Substance: VALPROATE SODIUM
     Indication: PARTIAL SEIZURES
     Route: 065
     Dates: start: 20160101
  3. LEVETIRACETAM. [Suspect]
     Active Substance: LEVETIRACETAM
     Indication: PARTIAL SEIZURES
     Route: 065
     Dates: start: 20160101

REACTIONS (4)
  - Drug ineffective [Unknown]
  - Loss of consciousness [Unknown]
  - Partial seizures [Recovered/Resolved]
  - Multiple-drug resistance [Unknown]
